FAERS Safety Report 19809684 (Version 1)
Quarter: 2021Q3

REPORT INFORMATION
  Report Type: Spontaneous
  Country: US (occurrence: US)
  Receive Date: 20210908
  Receipt Date: 20210908
  Transmission Date: 20211014
  Serious: No
  Sender: FDA-Public Use
  Company Number: US-ROCHE-2699172

PATIENT
  Sex: Male
  Weight: 72.64 kg

DRUGS (2)
  1. ALECENSA [Suspect]
     Active Substance: ALECTINIB HYDROCHLORIDE
     Indication: LUNG CARCINOMA CELL TYPE UNSPECIFIED STAGE IV
     Dosage: AFTER EATING ; ONGOING: NO
     Route: 048
     Dates: start: 20200401
  2. ALECENSA [Suspect]
     Active Substance: ALECTINIB HYDROCHLORIDE
     Dosage: AFTER EATING ; ONGOING: YES
     Route: 048

REACTIONS (1)
  - Constipation [Not Recovered/Not Resolved]
